FAERS Safety Report 25587000 (Version 1)
Quarter: 2025Q3

REPORT INFORMATION
  Report Type: Spontaneous
  Country: US (occurrence: US)
  Receive Date: 20250721
  Receipt Date: 20250721
  Transmission Date: 20251021
  Serious: No
  Sender: Phathom Pharmaceuticals
  Company Number: US-PHATHOM PHARMACEUTICALS INC.-2025PHT00873

PATIENT
  Age: 56 Year
  Sex: Female

DRUGS (2)
  1. VOQUEZNA TRIPLE PAK [Suspect]
     Active Substance: AMOXICILLIN\CLARITHROMYCIN\VONOPRAZAN FUMARATE
     Dosage: 20/500/500 MG, 1X/DAY
     Route: 048
     Dates: start: 20250410, end: 202504
  2. VOQUEZNA TRIPLE PAK [Suspect]
     Active Substance: AMOXICILLIN\CLARITHROMYCIN\VONOPRAZAN FUMARATE
     Dosage: 20/500 MG (NO CLARITHROMYCIN COMPONENT), 1X/DAY
     Route: 048
     Dates: start: 202504

REACTIONS (9)
  - Chills [Unknown]
  - Tremor [Unknown]
  - Throat irritation [Unknown]
  - Genital burning sensation [Unknown]
  - Pain [Unknown]
  - Blood pressure systolic increased [Unknown]
  - Pyrexia [Unknown]
  - Decreased appetite [Unknown]
  - Headache [Unknown]

NARRATIVE: CASE EVENT DATE: 20250401
